FAERS Safety Report 26087964 (Version 2)
Quarter: 2025Q4

REPORT INFORMATION
  Report Type: Spontaneous
  Country: IL (occurrence: IL)
  Receive Date: 20251125
  Receipt Date: 20251224
  Transmission Date: 20260119
  Serious: No
  Sender: PFIZER
  Company Number: IL-PFIZER INC-202500220329

PATIENT
  Sex: Female

DRUGS (1)
  1. CLINDAMYCIN PHOSPHATE [Suspect]
     Active Substance: CLINDAMYCIN PHOSPHATE
     Dosage: UNK

REACTIONS (2)
  - Device issue [Unknown]
  - Incorrect dose administered by device [Unknown]
